FAERS Safety Report 19718288 (Version 2)
Quarter: 2022Q1

REPORT INFORMATION
  Report Type: Spontaneous
  Country: JP (occurrence: JP)
  Receive Date: 20210818
  Receipt Date: 20220110
  Transmission Date: 20220423
  Serious: Yes (Life-Threatening, Disabling, Other)
  Sender: FDA-Public Use
  Company Number: JP-PFIZER INC-202101017053

PATIENT
  Age: 78 Year
  Sex: Female
  Weight: 46 kg

DRUGS (5)
  1. IBRANCE [Suspect]
     Active Substance: PALBOCICLIB
     Indication: Breast cancer female
     Dosage: 100 MG, 1X/DAY
     Route: 048
     Dates: start: 20210416, end: 20210528
  2. ZOLPIDEM TARTRATE [Suspect]
     Active Substance: ZOLPIDEM TARTRATE
     Indication: Insomnia
     Dosage: 5 MG, 1X/DAY
     Route: 048
     Dates: start: 20210416
  3. FEMARA [Suspect]
     Active Substance: LETROZOLE
     Indication: Breast cancer female
     Dosage: 2.5 MG, 1X/DAY
     Route: 048
     Dates: start: 20210416
  4. CALCIUM CARBONATE\CHOLECALCIFEROL\MAGNESIUM CARBONATE [Concomitant]
     Active Substance: CALCIUM CARBONATE\CHOLECALCIFEROL\MAGNESIUM CARBONATE
     Indication: Bone cancer metastatic
     Dosage: 2 DF, 1X/DAY
     Route: 048
     Dates: start: 20210416, end: 20210513
  5. DENOSUMAB [Concomitant]
     Active Substance: DENOSUMAB
     Indication: Bone cancer metastatic
     Dosage: 120 MG, MONTHLY
     Route: 058
     Dates: start: 20210416, end: 20210513

REACTIONS (3)
  - Intentional self-injury [Recovered/Resolved]
  - Depression [Recovered/Resolved]
  - Decubitus ulcer [Recovered/Resolved]

NARRATIVE: CASE EVENT DATE: 20210422
